FAERS Safety Report 7211431-9 (Version None)
Quarter: 2011Q1

REPORT INFORMATION
  Report Type: 
  Country: None (occurrence: None)
  Receive Date: 20110105
  Receipt Date: 20101230
  Transmission Date: 20110831
  Serious: Yes (Hospitalization, Other)
  Sender: FDA-Public Use
  Company Number: FR-ABBOTT-10P-056-0694543-00

PATIENT
  Sex: Male

DRUGS (2)
  1. VERCYTE [Suspect]
     Indication: POLYCYTHAEMIA
     Route: 048
     Dates: start: 20040701, end: 20100115
  2. COUMADIN [Concomitant]
     Indication: PRODUCT USED FOR UNKNOWN INDICATION

REACTIONS (6)
  - HAEMOGLOBIN DECREASED [None]
  - CHALAZION [None]
  - ULCERATIVE KERATITIS [None]
  - MEIBOMIANITIS [None]
  - PLATELET COUNT DECREASED [None]
  - MYELOPROLIFERATIVE DISORDER [None]
